FAERS Safety Report 8244693-X (Version None)
Quarter: 2012Q1

REPORT INFORMATION
  Report Type: 
  Country: None (occurrence: None)
  Receive Date: 20120329
  Receipt Date: 20110218
  Transmission Date: 20120608
  Serious: No
  Sender: FDA-Public Use
  Company Number: US-MYLANLABS-2009S1013036

PATIENT
  Sex: Female

DRUGS (9)
  1. ACCUPRIL [Concomitant]
  2. ASKINA DERM FILM DRESSING [Suspect]
     Dosage: Q72HR
     Route: 062
  3. ACTOS [Concomitant]
  4. HYDROCHLOROTHIAZIDE [Concomitant]
  5. NORVASC [Concomitant]
  6. PERCOCET [Concomitant]
  7. JANUVIA [Concomitant]
  8. FENTANYL-100 [Suspect]
     Indication: BACK PAIN
     Dosage: QOD
     Route: 062
     Dates: start: 20090601
  9. DIOVAN [Concomitant]
     Dates: start: 20090620

REACTIONS (4)
  - APPLICATION SITE ERYTHEMA [None]
  - APPLICATION SITE RASH [None]
  - APPLICATION SITE PAIN [None]
  - APPLICATION SITE PRURITUS [None]
